FAERS Safety Report 24893379 (Version 1)
Quarter: 2025Q1

REPORT INFORMATION
  Report Type: Spontaneous
  Country: GB (occurrence: GB)
  Receive Date: 20250128
  Receipt Date: 20250128
  Transmission Date: 20250408
  Serious: Yes (Disabling)
  Sender: ROCHE
  Company Number: None

PATIENT
  Age: 85 Year
  Sex: Female

DRUGS (1)
  1. FARICIMAB [Suspect]
     Active Substance: FARICIMAB
     Indication: Neovascular age-related macular degeneration
     Route: 050
     Dates: start: 20241216

REACTIONS (2)
  - Visual impairment [Recovering/Resolving]
  - Non-infectious endophthalmitis [Recovering/Resolving]

NARRATIVE: CASE EVENT DATE: 20241221
